FAERS Safety Report 21259761 (Version 1)
Quarter: 2022Q3

REPORT INFORMATION
  Report Type: Spontaneous
  Country: US (occurrence: None)
  Receive Date: 20220825
  Receipt Date: 20220825
  Transmission Date: 20221027
  Serious: No
  Sender: FDA-Public Use
  Company Number: None

PATIENT
  Age: 78 Year
  Sex: Male

DRUGS (1)
  1. ABIRATERONE [Suspect]
     Active Substance: ABIRATERONE
     Dosage: FREQUENCY : DAILY;?
     Route: 048
     Dates: start: 202205

REACTIONS (9)
  - Diarrhoea [None]
  - Hepatic enzyme increased [None]
  - Blood pressure increased [None]
  - Dizziness [None]
  - Fatigue [None]
  - Product size issue [None]
  - Pollakiuria [None]
  - Therapy interrupted [None]
  - Therapy non-responder [None]

NARRATIVE: CASE EVENT DATE: 20220825
